FAERS Safety Report 6968166-7 (Version None)
Quarter: 2010Q3

REPORT INFORMATION
  Report Type: 
  Country: None (occurrence: None)
  Receive Date: 20100907
  Receipt Date: 20100826
  Transmission Date: 20110219
  Serious: Yes (Hospitalization)
  Sender: FDA-Public Use
  Company Number: JP-ELI_LILLY_AND_COMPANY-JP201008007783

PATIENT
  Age: 73 Year
  Sex: Male
  Weight: 53 kg

DRUGS (27)
  1. PEMETREXED [Suspect]
     Indication: LUNG ADENOCARCINOMA STAGE III
     Dosage: 760 MG, OTHER
     Route: 042
     Dates: start: 20091117, end: 20091117
  2. PEMETREXED [Suspect]
     Dosage: 760 MG, OTHER
     Route: 042
     Dates: start: 20091208, end: 20091208
  3. PEMETREXED [Suspect]
     Dosage: 760 MG/M2, OTHER
     Route: 042
     Dates: start: 20100105, end: 20100105
  4. PANVITAN [Concomitant]
     Indication: PROPHYLAXIS
     Dosage: 1 G, DAILY (1/D)
     Route: 048
     Dates: start: 20091109, end: 20100130
  5. HYDROXOCOBALAMIN ACETATE [Concomitant]
     Indication: PROPHYLAXIS
     Dosage: 1 MG, OTHER
     Route: 030
     Dates: start: 20091110, end: 20091110
  6. HYDROXOCOBALAMIN ACETATE [Concomitant]
     Dosage: 1 MG, OTHER
     Route: 030
     Dates: start: 20100112, end: 20100112
  7. RINDERON [Concomitant]
     Indication: PROPHYLAXIS
     Dosage: UNK, UNKNOWN
     Route: 042
     Dates: start: 20091116, end: 20091118
  8. RINDERON [Concomitant]
     Dosage: UNK, UNKNOWN
     Route: 042
     Dates: start: 20091208, end: 20091208
  9. RINDERON [Concomitant]
     Dosage: UNK, UNKNOWN
     Route: 042
     Dates: start: 20100105, end: 20100105
  10. SEROTONE [Concomitant]
     Indication: PROPHYLAXIS
     Dosage: UNK, UNKNOWN
     Route: 042
     Dates: start: 20091117, end: 20091117
  11. SEROTONE [Concomitant]
     Dosage: UNK, UNKNOWN
     Route: 042
     Dates: start: 20091208, end: 20091208
  12. SEROTONE [Concomitant]
     Dosage: UNK, UNKNOWN
     Route: 042
     Dates: start: 20100105, end: 20100105
  13. RINDERON [Concomitant]
     Dosage: UNK, UNKNOWN
     Route: 048
     Dates: start: 20091207, end: 20091207
  14. RINDERON [Concomitant]
     Dosage: UNK, UNKNOWN
     Route: 048
     Dates: start: 20091209, end: 20091209
  15. RINDERON [Concomitant]
     Dosage: UNK, UNKNOWN
     Route: 048
     Dates: start: 20100104, end: 20100104
  16. RINDERON [Concomitant]
     Dosage: UNK, UNKNOWN
     Route: 048
     Dates: start: 20100106, end: 20100106
  17. PREDONINE [Concomitant]
     Indication: CANCER PAIN
     Dosage: UNK, UNKNOWN, STARTED BEFORE THE START OF PEMETREXED
     Route: 065
     Dates: end: 20100313
  18. GASTER D /JPN/ [Concomitant]
     Indication: PROPHYLAXIS
     Dosage: UNK, UNKNOWN, STARTED BEFORE THE START OF PEMETREXED
     Route: 048
     Dates: end: 20100313
  19. METHYCOBAL [Concomitant]
     Indication: CANCER PAIN
     Dosage: UNK, UNKNOWN, STARTED BEFORE THE START OF PEMETREXED
     Route: 065
     Dates: end: 20100313
  20. MAGLAX /JPN/ [Concomitant]
     Indication: PROPHYLAXIS
     Dosage: UNK, UNKNOWN, STARTED BEFORE THE START OF PEMETREXED
     Route: 048
     Dates: end: 20100313
  21. MUCODYNE [Concomitant]
     Dosage: UNK, UNKNOWN, STARTED BEFORE THE START OF PEMETREXED
     Route: 048
     Dates: end: 20100313
  22. PRIMPERAN TAB [Concomitant]
     Dosage: UNK, UNKNOWN, STARTED BEFORE THE START OF PEMETREXED
     Route: 065
     Dates: end: 20100313
  23. NOVAMIN [Concomitant]
     Dosage: UNK, UNKNOWN, STARTED BEFORE THE START OF PEMETREXED
     Route: 065
     Dates: end: 20100313
  24. OPALMON [Concomitant]
     Dosage: UNK, UNKNOWN, STARTED BEFORE THE START OF PEMETREXED
     Route: 048
     Dates: end: 20100313
  25. LOXONIN [Concomitant]
     Indication: CANCER PAIN
     Dosage: UNK, UNKNOWN, STARTED BEFORE THE START OF PEMETREXED
     Route: 065
     Dates: end: 20100313
  26. MUCOSTA [Concomitant]
     Indication: PROPHYLAXIS
     Dosage: UNK, UNKNOWN, STARTED BEFORE THE START OF PEMETREXED
     Route: 048
     Dates: end: 20100313
  27. DUROTEP [Concomitant]
     Indication: CANCER PAIN
     Dosage: UNK, UNKNOWN, STARTED BEFORE THE START OF PEMETREXED
     Route: 062
     Dates: end: 20100313

REACTIONS (1)
  - C-REACTIVE PROTEIN INCREASED [None]
